FAERS Safety Report 4607611-9 (Version None)
Quarter: 2005Q1

REPORT INFORMATION
  Report Type: 
  Country: None (occurrence: None)
  Receive Date: 20050314
  Receipt Date: 20041227
  Transmission Date: 20050727
  Serious: Yes (Hospitalization)
  Sender: FDA-Public Use
  Company Number: JP-NOVOPROD-241349

PATIENT
  Age: 31 Year
  Sex: Female
  Weight: 57 kg

DRUGS (7)
  1. NOVORAPID CHU FLEXPEN [Suspect]
     Indication: DIABETES MELLITUS INSULIN-DEPENDENT
     Dosage: 20 IU, QD
     Route: 058
     Dates: start: 20030516, end: 20040206
  2. METHIMAZOLE [Concomitant]
     Indication: ILL-DEFINED DISORDER
     Dates: start: 20020823
  3. SELBEX [Concomitant]
     Indication: ILL-DEFINED DISORDER
     Dates: start: 20031219
  4. DOGMATYL [Concomitant]
     Indication: ILL-DEFINED DISORDER
     Dates: start: 20031107
  5. HALCION [Concomitant]
     Indication: ILL-DEFINED DISORDER
     Dates: start: 19940101
  6. DEPAS [Concomitant]
     Indication: ILL-DEFINED DISORDER
     Dates: start: 20021001
  7. HUMACART-N [Concomitant]
     Indication: ILL-DEFINED DISORDER
     Dates: start: 20020712

REACTIONS (2)
  - HYPOGLYCAEMIA [None]
  - PANIC DISORDER [None]
